FAERS Safety Report 7647705-7 (Version None)
Quarter: 2011Q3

REPORT INFORMATION
  Report Type: 
  Country: None (occurrence: None)
  Receive Date: 20110801
  Receipt Date: 20110801
  Transmission Date: 20111222
  Serious: Yes (Other)
  Sender: FDA-Public Use
  Company Number: None

PATIENT
  Age: 54 Year
  Sex: Female
  Weight: 88.45 kg

DRUGS (1)
  1. ENJUVIA [Suspect]
     Indication: MENOPAUSE
     Dosage: 1 PILL
     Route: 048
     Dates: start: 20110723, end: 20110729

REACTIONS (2)
  - MUSCLE SPASMS [None]
  - DYSPNOEA [None]
